FAERS Safety Report 21943779 (Version 1)
Quarter: 2023Q1

REPORT INFORMATION
  Report Type: Spontaneous
  Country: US (occurrence: None)
  Receive Date: 20230201
  Receipt Date: 20230201
  Transmission Date: 20230418
  Serious: Yes (Disabling)
  Sender: FDA-Public Use
  Company Number: None

PATIENT
  Age: 29 Year
  Sex: Female

DRUGS (1)
  1. PREDNISOLONE ACETATE [Suspect]
     Active Substance: PREDNISOLONE ACETATE
     Indication: Ulcerative keratitis
     Dosage: FREQUENCY : DAILY;?
     Route: 047
     Dates: start: 20190102

REACTIONS (1)
  - Corneal transplant [None]

NARRATIVE: CASE EVENT DATE: 20181016
